FAERS Safety Report 24843625 (Version 1)
Quarter: 2025Q1

REPORT INFORMATION
  Report Type: Spontaneous
  Country: JP (occurrence: JP)
  Receive Date: 20250115
  Receipt Date: 20250115
  Transmission Date: 20250409
  Serious: Yes (Hospitalization, Disabling, Other)
  Sender: GILEAD
  Company Number: JP-BAYER-2024A130527

PATIENT
  Age: 68 Year
  Sex: Male

DRUGS (7)
  1. EPCLUSA [Interacting]
     Active Substance: SOFOSBUVIR\VELPATASVIR
     Indication: Chronic hepatitis C
     Route: 065
     Dates: start: 20240806, end: 20240903
  2. XARELTO [Interacting]
     Active Substance: RIVAROXABAN
     Indication: Cerebrovascular accident prophylaxis
     Route: 048
     Dates: start: 20240323, end: 20240903
  3. XARELTO [Interacting]
     Active Substance: RIVAROXABAN
     Indication: Thrombosis prophylaxis
  4. XARELTO [Interacting]
     Active Substance: RIVAROXABAN
     Indication: Atrial fibrillation
  5. CEFTRIAXONE [Suspect]
     Active Substance: CEFTRIAXONE
     Indication: Pneumonia
     Route: 065
     Dates: start: 20240904
  6. LANSOPRAZOLE [Concomitant]
     Active Substance: LANSOPRAZOLE
  7. BISOPROLOL [Concomitant]
     Active Substance: BISOPROLOL

REACTIONS (9)
  - Thalamus haemorrhage [Recovered/Resolved with Sequelae]
  - Pneumonia [Unknown]
  - International normalised ratio increased [Recovered/Resolved]
  - Decreased appetite [Recovering/Resolving]
  - Malnutrition [Recovering/Resolving]
  - Blood albumin decreased [Recovering/Resolving]
  - Child-Pugh-Turcotte score increased [Recovered/Resolved]
  - Gait disturbance [Unknown]
  - Drug interaction [Unknown]

NARRATIVE: CASE EVENT DATE: 20240903
